FAERS Safety Report 7911278-1 (Version None)
Quarter: 2011Q4

REPORT INFORMATION
  Report Type: 
  Country: None (occurrence: None)
  Receive Date: 20111109
  Receipt Date: 20110928
  Transmission Date: 20120403
  Serious: Yes (Hospitalization, Other)
  Sender: FDA-Public Use
  Company Number: DSA_47778_2011

PATIENT
  Sex: Female

DRUGS (3)
  1. FLOMOX [Concomitant]
  2. ZOVIRAX [Suspect]
     Indication: GINGIVITIS
     Dosage: (0.4 G ORAL)
     Route: 048
     Dates: start: 20110924, end: 20110926
  3. ZOVIRAX [Suspect]
     Indication: ORAL HERPES
     Dosage: (0.4 G ORAL)
     Route: 048
     Dates: start: 20110924, end: 20110926

REACTIONS (2)
  - AGRANULOCYTOSIS [None]
  - RASH [None]
